FAERS Safety Report 7733578-0 (Version None)
Quarter: 2011Q3

REPORT INFORMATION
  Report Type: 
  Country: None (occurrence: None)
  Receive Date: 20110902
  Receipt Date: 20110902
  Transmission Date: 20111222
  Serious: Yes (Life-Threatening, Hospitalization, Other)
  Sender: FDA-Public Use
  Company Number: None

PATIENT
  Age: 19 Year
  Sex: Male
  Weight: 56.6996 kg

DRUGS (1)
  1. EFFEXOR [Suspect]

REACTIONS (7)
  - HYPOAESTHESIA [None]
  - DEPRESSED MOOD [None]
  - DEPRESSION [None]
  - ERECTILE DYSFUNCTION [None]
  - SUICIDAL BEHAVIOUR [None]
  - MEMORY IMPAIRMENT [None]
  - PAIN [None]
